FAERS Safety Report 18654648 (Version 1)
Quarter: 2020Q4

REPORT INFORMATION
  Report Type: Spontaneous
  Country: MY (occurrence: MY)
  Receive Date: 20201223
  Receipt Date: 20201223
  Transmission Date: 20210114
  Serious: Yes (Other)
  Sender: FDA-Public Use
  Company Number: MY-TORRENT-00000253

PATIENT
  Age: 74 Year
  Sex: Male

DRUGS (1)
  1. MEMENTOR TABLETS 10 MG [Suspect]
     Active Substance: MEMANTINE HYDROCHLORIDE
     Indication: DEMENTIA
     Route: 048

REACTIONS (2)
  - Product substitution issue [Unknown]
  - Hallucination [Recovered/Resolved]
